FAERS Safety Report 24925102 (Version 1)
Quarter: 2025Q1

REPORT INFORMATION
  Report Type: Report from Study
  Country: US (occurrence: US)
  Receive Date: 20250204
  Receipt Date: 20250204
  Transmission Date: 20250409
  Serious: No
  Sender: EXELIXIS
  Company Number: US-EXELIXIS-CABO-24077830

PATIENT
  Age: 60 Year
  Sex: Female

DRUGS (23)
  1. CABOMETYX [Suspect]
     Active Substance: CABOZANTINIB S-MALATE
     Indication: Renal cell carcinoma
     Dosage: 40 MG, QD
     Dates: start: 20240506, end: 20240625
  2. REVLIMID [Suspect]
     Active Substance: LENALIDOMIDE
     Indication: Renal cell carcinoma
  3. GABAPENTIN [Concomitant]
     Active Substance: GABAPENTIN
  4. GLIPIZIDE [Concomitant]
     Active Substance: GLIPIZIDE
  5. LOVASTATIN [Concomitant]
     Active Substance: LOVASTATIN
  6. OXYCODONE [Concomitant]
     Active Substance: OXYCODONE
  7. REGLAN [Concomitant]
     Active Substance: METOCLOPRAMIDE HYDROCHLORIDE
  8. OMEPRAZOLE [Concomitant]
     Active Substance: OMEPRAZOLE
  9. TRESIBA [Concomitant]
     Active Substance: INSULIN DEGLUDEC
  10. ZOFRAN [Concomitant]
     Active Substance: ONDANSETRON HYDROCHLORIDE
  11. SENNA S [Concomitant]
     Active Substance: DOCUSATE SODIUM\SENNOSIDES
  12. OZEMPIC [Concomitant]
     Active Substance: SEMAGLUTIDE
  13. OXYCODONE AND ACETAMINOPHEN [Concomitant]
     Active Substance: ACETAMINOPHEN\OXYCODONE HYDROCHLORIDE
  14. HYDROXYZINE HYDROCHLORIDE [Concomitant]
     Active Substance: HYDROXYZINE HYDROCHLORIDE
  15. METHOCARBAMOL [Concomitant]
     Active Substance: METHOCARBAMOL
  16. LEVOTHYROXINE [Concomitant]
     Active Substance: LEVOTHYROXINE
  17. LISINOPRIL [Concomitant]
     Active Substance: LISINOPRIL
  18. INSULIN ASPART [Concomitant]
     Active Substance: INSULIN ASPART
  19. VITAMINS [Concomitant]
     Active Substance: VITAMINS
  20. VITAMIN D [Concomitant]
     Active Substance: VITAMIN D NOS
  21. MENAQUINONE 6 [Concomitant]
     Active Substance: MENAQUINONE 6
  22. VITAMIN B6 [Concomitant]
     Active Substance: PYRIDOXINE HYDROCHLORIDE
  23. DIPHENHYDRAMINE HYDROCHLORIDE\LIDOCAINE HYDROCHLORIDE\NYSTATIN [Concomitant]
     Active Substance: DIPHENHYDRAMINE HYDROCHLORIDE\LIDOCAINE HYDROCHLORIDE\NYSTATIN

REACTIONS (15)
  - Alopecia [Not Recovered/Not Resolved]
  - Oral mucosal eruption [Unknown]
  - Palmar-plantar erythrodysaesthesia syndrome [Recovering/Resolving]
  - Decreased appetite [Not Recovered/Not Resolved]
  - Fatigue [Not Recovered/Not Resolved]
  - Nausea [Not Recovered/Not Resolved]
  - Stomatitis [Not Recovered/Not Resolved]
  - Oesophageal mucosa erythema [Not Recovered/Not Resolved]
  - Gastrointestinal disorder [Not Recovered/Not Resolved]
  - Laboratory test abnormal [Recovering/Resolving]
  - Ageusia [Not Recovered/Not Resolved]
  - Gastric mucosa erythema [Not Recovered/Not Resolved]
  - Blood glucose increased [Not Recovered/Not Resolved]
  - White blood cell count decreased [Not Recovered/Not Resolved]
  - Pain [Not Recovered/Not Resolved]

NARRATIVE: CASE EVENT DATE: 20240702
